FAERS Safety Report 22867302 (Version 7)
Quarter: 2023Q4

REPORT INFORMATION
  Report Type: Report from Study
  Country: JP (occurrence: None)
  Receive Date: 20230825
  Receipt Date: 20231003
  Transmission Date: 20240109
  Serious: Yes (Death)
  Sender: FDA-Public Use
  Company Number: JP-ROCHE-3410409

PATIENT
  Age: 73 Year
  Sex: Male

DRUGS (8)
  1. FARICIMAB [Suspect]
     Active Substance: FARICIMAB
     Indication: Diabetic retinal oedema
     Dosage: ON 10/MAY/2023 4:53 PM, HE RECEIVED MOST RECENT DOSE OF FARCIMAB 6 MG PRIOR TO AE/SAE ONSET.
     Route: 050
     Dates: start: 20210901
  2. AMARYL [Concomitant]
     Active Substance: GLIMEPIRIDE
     Indication: Type 2 diabetes mellitus
     Route: 048
  3. LIPITOR [Concomitant]
     Active Substance: ATORVASTATIN CALCIUM
     Indication: Hyperlipidaemia
     Route: 048
  4. ASPIRIN [Concomitant]
     Active Substance: ASPIRIN
     Indication: Myocardial infarction
     Route: 048
  5. REBAMIPIDE [Concomitant]
     Active Substance: REBAMIPIDE
     Route: 048
  6. SENNOSIDES [Concomitant]
     Active Substance: SENNOSIDES
     Indication: Constipation
     Route: 048
  7. EMPAGLIFLOZIN\LINAGLIPTIN [Concomitant]
     Active Substance: EMPAGLIFLOZIN\LINAGLIPTIN
     Indication: Type 2 diabetes mellitus
     Route: 048
     Dates: start: 20191112
  8. LASIX [Concomitant]
     Active Substance: FUROSEMIDE
     Indication: Hypertension
     Route: 048
     Dates: start: 20191112

REACTIONS (1)
  - Death [Fatal]

NARRATIVE: CASE EVENT DATE: 20230610
